FAERS Safety Report 7402591-5 (Version None)
Quarter: 2011Q2

REPORT INFORMATION
  Report Type: 
  Country: None (occurrence: None)
  Receive Date: 20110408
  Receipt Date: 20110406
  Transmission Date: 20111010
  Serious: Yes (Life-Threatening, Hospitalization, Other)
  Sender: FDA-Public Use
  Company Number: PHHY2011BR28474

PATIENT
  Sex: Male

DRUGS (1)
  1. DIOVAN AMLO FIX [Suspect]
     Dosage: 320/5 MG

REACTIONS (2)
  - COMA [None]
  - HYPERTENSION [None]
